FAERS Safety Report 17967697 (Version 1)
Quarter: 2020Q3

REPORT INFORMATION
  Report Type: Spontaneous
  Country: US (occurrence: US)
  Receive Date: 20200701
  Receipt Date: 20200701
  Transmission Date: 20201103
  Serious: No
  Sender: FDA-Public Use
  Company Number: US-PFIZER INC-2020252966

PATIENT
  Age: 62 Year
  Sex: Female

DRUGS (1)
  1. IBRANCE [Suspect]
     Active Substance: PALBOCICLIB
     Dosage: 75 MG
     Dates: start: 20200110

REACTIONS (5)
  - Nausea [Recovering/Resolving]
  - Vision blurred [Unknown]
  - Headache [Unknown]
  - Fatigue [Recovering/Resolving]
  - Oral pain [Recovering/Resolving]
